FAERS Safety Report 8317202 (Version 3)
Quarter: 2013Q2

REPORT INFORMATION
  Report Type: Spontaneous
  Country: SE (occurrence: SE)
  Receive Date: 20111230
  Receipt Date: 20130403
  Transmission Date: 20140414
  Serious: Yes (Other)
  Sender: FDA-Public Use
  Company Number: SE-AMGEN-SWESP2011068018

PATIENT
  Age: 61 Year
  Sex: Male

DRUGS (2)
  1. NPLATE [Suspect]
     Indication: IDIOPATHIC THROMBOCYTOPENIC PURPURA
     Dosage: 85 MUG/ML, QWK
     Dates: start: 201109, end: 20111201
  2. MABTHERA [Suspect]
     Indication: LYMPHOMA
     Dosage: UNK
     Dates: start: 20111201

REACTIONS (2)
  - Platelet count abnormal [Unknown]
  - Venous thrombosis limb [Unknown]
